FAERS Safety Report 6969192-4 (Version None)
Quarter: 2010Q3

REPORT INFORMATION
  Report Type: 
  Country: None (occurrence: None)
  Receive Date: 20100907
  Receipt Date: 20100831
  Transmission Date: 20110219
  Serious: Yes (Hospitalization)
  Sender: FDA-Public Use
  Company Number: PHHO2010DE13254

PATIENT
  Sex: Male

DRUGS (4)
  1. ZOMETA [Suspect]
     Indication: PROPHYLAXIS
     Dosage: UNK
     Route: 042
     Dates: start: 20100114, end: 20100617
  2. PREDNISONE [Concomitant]
  3. RAMIPRIL [Concomitant]
  4. DOCETAXEL [Concomitant]

REACTIONS (2)
  - DENTAL OPERATION [None]
  - OSTEONECROSIS OF JAW [None]
